FAERS Safety Report 7639957-4 (Version None)
Quarter: 2011Q3

REPORT INFORMATION
  Report Type: 
  Country: None (occurrence: None)
  Receive Date: 20110727
  Receipt Date: 20110718
  Transmission Date: 20111222
  Serious: Yes (Hospitalization, Other)
  Sender: FDA-Public Use
  Company Number: BR-ROCHE-718423

PATIENT
  Sex: Male
  Weight: 80 kg

DRUGS (18)
  1. TOCILIZUMAB [Suspect]
     Indication: RHEUMATOID ARTHRITIS
     Dosage: FORM: INFUSION;12 INFUSIONS
     Route: 042
     Dates: start: 20091201, end: 20110104
  2. TORSILAX [Concomitant]
     Indication: PAIN
  3. DEPURAN [Concomitant]
  4. TOCILIZUMAB [Suspect]
     Route: 042
     Dates: end: 20110301
  5. LISINOPRIL [Concomitant]
  6. CHLOROQUINE [Concomitant]
  7. RANITIDINE [Concomitant]
  8. FAMOTIDINE [Concomitant]
  9. CARBAMAZEPINE [Concomitant]
  10. KETOPROFEN [Concomitant]
  11. PREDNISONE [Concomitant]
  12. BENZBROMARONA [Concomitant]
     Dosage: DRUG REPORTED AS BENZOBROMARONA
  13. VITAMIN B COMPLEX CAP [Concomitant]
  14. OMEPRAZOLE [Concomitant]
  15. METHOTREXATE [Concomitant]
  16. FOLIC ACID [Concomitant]
  17. ALLOPURINOL [Concomitant]
  18. TRAMADOL HYDROCHLORIDE [Concomitant]
     Indication: PAIN

REACTIONS (13)
  - BLOOD URIC ACID INCREASED [None]
  - RENAL IMPAIRMENT [None]
  - HAEMORRHOIDS [None]
  - ASTHENIA [None]
  - INFLAMMATION [None]
  - MACULE [None]
  - ARTHRALGIA [None]
  - VARICOSE VEIN RUPTURED [None]
  - DIZZINESS POSTURAL [None]
  - MYELOPATHY [None]
  - DUODENAL ULCER [None]
  - DRUG INEFFECTIVE [None]
  - ERYSIPELAS [None]
